FAERS Safety Report 7397010-1 (Version None)
Quarter: 2011Q1

REPORT INFORMATION
  Report Type: 
  Country: None (occurrence: None)
  Receive Date: 20110328
  Receipt Date: 20110310
  Transmission Date: 20110831
  Serious: Yes (Life-Threatening, Hospitalization, Other)
  Sender: FDA-Public Use
  Company Number: GER/GER/11/0017750

PATIENT
  Age: 67 Year
  Sex: Female
  Weight: 93 kg

DRUGS (7)
  1. IBUPROFEN [Suspect]
     Indication: SPINAL OSTEOARTHRITIS
     Dosage: AS REQUIRED, ORAL
     Route: 048
     Dates: end: 20101102
  2. RAMIPRIL [Suspect]
     Indication: PRODUCT USED FOR UNKNOWN INDICATION
     Dosage: 1 IN 1 D, ORAL
     Route: 048
     Dates: start: 20101105, end: 20101129
  3. IBUHEXAL (IBUPROFEN) [Suspect]
     Indication: SPINAL OSTEOARTHRITIS
     Dosage: 400 MG, 1 IN 1 D, ORAL
     Route: 048
     Dates: start: 20101103, end: 20101103
  4. RAMIPRIL [Suspect]
     Indication: PRODUCT USED FOR UNKNOWN INDICATION
     Dosage: 2.5 MG, 2 IN 1 D, ORAL
     Route: 048
     Dates: start: 20100923, end: 20101102
  5. DICLOFENAC (DICLOFENAC) [Suspect]
     Indication: SPINAL OSTEOARTHRITIS
     Dosage: AS REQUIRED, ORAL
     Route: 048
     Dates: end: 20101102
  6. CORDAREX  (AMIODARONE HYDROCHLORIDE) [Suspect]
     Indication: ATRIAL FIBRILLATION
     Dosage: 200 MG, 1 IN 1 D, ORAL
     Route: 048
     Dates: start: 20101103, end: 20101109
  7. AMLODIPIN HEXAL (AMLODIPINE) [Suspect]
     Indication: HYPERTENSION
     Dosage: 5 MG, ORAL
     Route: 048
     Dates: start: 20101103, end: 20101109

REACTIONS (3)
  - RENAL FAILURE ACUTE [None]
  - RENAL FAILURE CHRONIC [None]
  - ATRIAL FIBRILLATION [None]
